FAERS Safety Report 12598184 (Version 1)
Quarter: 2016Q3

REPORT INFORMATION
  Report Type: Spontaneous
  Country: US (occurrence: None)
  Receive Date: 20160726
  Receipt Date: 20160726
  Transmission Date: 20161109
  Serious: Yes (Other)
  Sender: FDA-Public Use
  Company Number: None

PATIENT
  Age: 53 Year
  Sex: Female
  Weight: 77.11 kg

DRUGS (10)
  1. PLEGRIDY [Suspect]
     Active Substance: PEGINTERFERON BETA-1A
     Indication: MULTIPLE SCLEROSIS
     Dosage: EVERY OTHER DAY  SUB-Q IN THE STOMACH
     Route: 058
     Dates: start: 20141116, end: 20150415
  2. BETHANICAL [Concomitant]
  3. PROTONIX [Concomitant]
     Active Substance: PANTOPRAZOLE SODIUM
  4. GILENYA [Concomitant]
     Active Substance: FINGOLIMOD HYDROCHLORIDE
  5. CANE [Concomitant]
  6. BACHLOPHEN [Concomitant]
  7. FLEXERAL [Concomitant]
  8. ASPRIN [Concomitant]
     Active Substance: ASPIRIN
  9. LYRICA [Concomitant]
     Active Substance: PREGABALIN
  10. HYDROCHLOROTHYIAZED [Concomitant]

REACTIONS (2)
  - Spinal disorder [None]
  - Muscle contractions involuntary [None]

NARRATIVE: CASE EVENT DATE: 20150415
